FAERS Safety Report 5695765-5 (Version None)
Quarter: 2008Q2

REPORT INFORMATION
  Report Type: 
  Country: None (occurrence: None)
  Receive Date: 20080407
  Receipt Date: 20080326
  Transmission Date: 20081010
  Serious: Yes (Hospitalization)
  Sender: FDA-Public Use
  Company Number: FR-NOVOPROD-273522

PATIENT
  Age: 19 Year
  Sex: Male

DRUGS (2)
  1. NOVOLOG MIX 70/30 [Suspect]
     Indication: TYPE 1 DIABETES MELLITUS
     Dosage: 84IU AM AND 40IU PM, QD
     Dates: start: 20071231, end: 20080201
  2. ACTRAPID [Concomitant]

REACTIONS (3)
  - ARTHRALGIA [None]
  - PYREXIA [None]
  - URTICARIA [None]
